FAERS Safety Report 9026789 (Version 1)
Quarter: 2013Q1

REPORT INFORMATION
  Report Type: Report from Study
  Country: KR (occurrence: KR)
  Receive Date: 20130123
  Receipt Date: 20130123
  Transmission Date: 20140127
  Serious: Yes (Death)
  Sender: FDA-Public Use
  Company Number: KR-ASTELLAS-2013JP000368

PATIENT
  Age: 24 Year
  Sex: Female
  Weight: 42.7 kg

DRUGS (12)
  1. TACROLIMUS CAPSULES [Suspect]
     Indication: LUPUS NEPHRITIS
     Dosage: 3 MG, UNKNOWN/D
     Route: 048
     Dates: start: 20100727, end: 20101021
  2. LIPITOR [Concomitant]
     Dosage: 10 MG, UNKNOWN/D
     Route: 048
     Dates: start: 20100318
  3. DICAMAX [Concomitant]
     Dosage: 1 DF, UNKNOWN/D
     Route: 048
  4. TRITACE [Concomitant]
     Dosage: 5 MG, UNKNOWN/D
     Route: 048
  5. FEROBA [Concomitant]
     Dosage: 512 MG, UNKNOWN/D
     Route: 048
  6. MICARDIS [Concomitant]
     Dosage: 40 MG, UNKNOWN/D
     Route: 048
  7. FOSAMAX PLUS [Concomitant]
     Dosage: 1 DF, UNKNOWN/D
     Route: 048
  8. LASIX                              /00032601/ [Concomitant]
     Dosage: 40 MG, UNKNOWN/D
     Route: 048
  9. SOLONDO [Concomitant]
     Dosage: 10 MG, UNKNOWN/D
     Route: 048
     Dates: end: 20100916
  10. SOLONDO [Concomitant]
     Dosage: 60 MG, UNKNOWN/D
     Route: 048
     Dates: start: 20100918, end: 20101001
  11. SOLONDO [Concomitant]
     Dosage: 30 MG, UNKNOWN/D
     Route: 048
     Dates: start: 20101002, end: 20101008
  12. SOLONDO [Concomitant]
     Dosage: 25 MG, UNKNOWN/D
     Route: 048
     Dates: start: 20101009

REACTIONS (1)
  - Blood creatinine increased [Fatal]
